FAERS Safety Report 18146911 (Version 1)
Quarter: 2020Q3

REPORT INFORMATION
  Report Type: Spontaneous
  Country: US (occurrence: US)
  Receive Date: 20200813
  Receipt Date: 20200813
  Transmission Date: 20201103
  Serious: No
  Sender: FDA-Public Use
  Company Number: US-009507513-2007USA005551

PATIENT
  Age: 31 Year
  Sex: Female

DRUGS (3)
  1. BLOOD, PLASMA [Concomitant]
     Active Substance: HUMAN PLASMA
     Indication: ANAEMIA
  2. CELESTONE SOLUSPAN [Suspect]
     Active Substance: BETAMETHASONE ACETATE\BETAMETHASONE SODIUM PHOSPHATE
     Indication: MATERNAL THERAPY TO ENHANCE FOETAL LUNG MATURITY
     Dosage: UNK
  3. BLOOD CELLS, RED [Concomitant]
     Active Substance: HUMAN RED BLOOD CELL
     Indication: ANAEMIA

REACTIONS (2)
  - Product use in unapproved indication [Unknown]
  - Maternal exposure during pregnancy [Recovered/Resolved]
